FAERS Safety Report 22322964 (Version 1)
Quarter: 2023Q2

REPORT INFORMATION
  Report Type: Spontaneous
  Country: US (occurrence: US)
  Receive Date: 20230516
  Receipt Date: 20230516
  Transmission Date: 20230721
  Serious: No
  Sender: FDA-Public Use
  Company Number: AXS2022-255

PATIENT
  Age: 54 Year
  Sex: Female
  Weight: 83.082 kg

DRUGS (16)
  1. SUNOSI [Suspect]
     Active Substance: SOLRIAMFETOL
     Indication: Product used for unknown indication
     Dosage: UNK
  2. BACLOFEN [Concomitant]
     Active Substance: BACLOFEN
     Indication: Product used for unknown indication
     Dosage: 20 MG
     Route: 048
  3. Calcium and magnesium carbonate [Concomitant]
     Indication: Product used for unknown indication
     Dosage: UNK
     Route: 048
  4. Omega [Concomitant]
     Indication: Product used for unknown indication
     Dosage: 3 CAP, 1 CAPSULE(S) PO QD.
  5. Vitamin B Comp With Vit C [Concomitant]
     Indication: Product used for unknown indication
     Dosage: UNK
     Route: 048
  6. FLUCONAZOLE [Concomitant]
     Active Substance: FLUCONAZOLE
     Indication: Product used for unknown indication
     Dosage: UNK
  7. WAKIX [Concomitant]
     Active Substance: PITOLISANT HYDROCHLORIDE
     Indication: Product used for unknown indication
     Dosage: UNK
  8. MODAFINIL [Concomitant]
     Active Substance: MODAFINIL
     Indication: Product used for unknown indication
     Dosage: 200 MG TABLET TAKE 1 TABLET(S) ORAL TWO -TIMES A DAY
     Route: 048
     Dates: start: 20220705
  9. Optive Mega [Concomitant]
     Indication: Product used for unknown indication
     Dosage: UNK
     Route: 047
  10. Acetyl- L- canitine [Concomitant]
     Indication: Product used for unknown indication
     Dosage: UNK
  11. GLYCINE [Concomitant]
     Active Substance: GLYCINE
     Indication: Product used for unknown indication
     Dosage: UNK
     Route: 048
  12. ADDERALL [Concomitant]
     Active Substance: AMPHETAMINE ASPARTATE\AMPHETAMINE SULFATE\DEXTROAMPHETAMINE SACCHARATE\DEXTROAMPHETAMINE SULFATE
     Indication: Product used for unknown indication
     Dosage: 20 MG
     Route: 048
     Dates: end: 20221007
  13. FLUOXETINE [Concomitant]
     Active Substance: FLUOXETINE HYDROCHLORIDE
     Indication: Product used for unknown indication
     Dosage: 40 MG, TAKE 1 CAPSULE ORAL QD 90 DAYS
     Route: 048
  14. ADDERALL XR [Concomitant]
     Active Substance: AMPHETAMINE ASPARTATE\AMPHETAMINE SULFATE\DEXTROAMPHETAMINE SACCHARATE\DEXTROAMPHETAMINE SULFATE
     Indication: Product used for unknown indication
     Dosage: 30 MG
     Route: 048
     Dates: end: 20221007
  15. SYNTHROID [Concomitant]
     Active Substance: LEVOTHYROXINE SODIUM
     Indication: Product used for unknown indication
     Dosage: 75 MCG ,1 TABLET PER ORAL QD
  16. MODAFINIL [Concomitant]
     Active Substance: MODAFINIL
     Indication: Product used for unknown indication
     Dosage: 200 MG TABLET -1 TABLET(S):ORAL TWO TIMES A DAY, 90 DAYS, 1 RELL, FOR E TOTAL OF 180,
     Route: 048

REACTIONS (1)
  - Treatment failure [Unknown]
